FAERS Safety Report 4558255-9 (Version None)
Quarter: 2005Q1

REPORT INFORMATION
  Report Type: 
  Country: None (occurrence: None)
  Receive Date: 20050121
  Receipt Date: 20041216
  Transmission Date: 20050727
  Serious: Yes (Other)
  Sender: FDA-Public Use
  Company Number: FR-BRISTOL-MYERS SQUIBB COMPANY-12799615

PATIENT
  Age: 40 Year
  Sex: Female
  Weight: 94 kg

DRUGS (4)
  1. REYATAZ [Suspect]
     Indication: HIV INFECTION
     Route: 048
     Dates: start: 20041130, end: 20041213
  2. VIDEX [Concomitant]
     Indication: HIV INFECTION
     Route: 048
     Dates: start: 20041130, end: 20041213
  3. RETROVIR [Concomitant]
     Indication: HIV INFECTION
     Dosage: INTERRUPTED 10-AUG-2004 TO 30-NOV-2004
     Route: 048
     Dates: start: 19981119, end: 20041213
  4. NORVIR [Concomitant]
     Indication: HIV INFECTION
     Route: 048
     Dates: start: 20041130, end: 20041213

REACTIONS (2)
  - HYPERBILIRUBINAEMIA [None]
  - TOXIC SKIN ERUPTION [None]
